FAERS Safety Report 8284696-2 (Version None)
Quarter: 2012Q2

REPORT INFORMATION
  Report Type: 
  Country: None (occurrence: None)
  Receive Date: 20120413
  Receipt Date: 20110316
  Transmission Date: 20120825
  Serious: No
  Sender: FDA-Public Use
  Company Number: US-ASTRAZENECA-2011SE08977

PATIENT
  Age: 45 Year
  Sex: Female

DRUGS (6)
  1. NEXIUM [Suspect]
     Route: 048
  2. XANAX [Interacting]
     Route: 065
  3. DILTIAZEM HCL [Interacting]
     Route: 065
  4. ESGIC-PLUS [Interacting]
     Route: 065
  5. FLEXERIL [Interacting]
     Route: 065
  6. TRAMADOL HCL [Interacting]
     Route: 065

REACTIONS (7)
  - AMNESIA [None]
  - DRUG EFFECT DECREASED [None]
  - MEMORY IMPAIRMENT [None]
  - SYNCOPE [None]
  - DRUG INTERACTION [None]
  - SOMNOLENCE [None]
  - DRUG DOSE OMISSION [None]
